FAERS Safety Report 19474870 (Version 2)
Quarter: 2021Q3

REPORT INFORMATION
  Report Type: Spontaneous
  Country: US (occurrence: US)
  Receive Date: 20210629
  Receipt Date: 20210919
  Transmission Date: 20211014
  Serious: No
  Sender: FDA-Public Use
  Company Number: US-SA-2021SA210229

PATIENT
  Sex: Female

DRUGS (13)
  1. CRYSELLE [Concomitant]
     Active Substance: ETHINYL ESTRADIOL\NORGESTREL
  2. CERDELGA [Suspect]
     Active Substance: ELIGLUSTAT
     Indication: GAUCHER^S DISEASE
     Dosage: 84 MG, BID
     Route: 048
     Dates: start: 20151015
  3. FLUOXETINE [Concomitant]
     Active Substance: FLUOXETINE HYDROCHLORIDE
  4. TRAMADOL. [Concomitant]
     Active Substance: TRAMADOL
  5. VITAMIN C [Concomitant]
     Active Substance: ASCORBIC ACID
  6. CERDELGA [Suspect]
     Active Substance: ELIGLUSTAT
     Indication: LIPIDOSIS
  7. ADVIL [Concomitant]
     Active Substance: IBUPROFEN
  8. FUROSEMIDE. [Concomitant]
     Active Substance: FUROSEMIDE
  9. IRON [Concomitant]
     Active Substance: IRON
  10. MOTRIN IB [Concomitant]
     Active Substance: IBUPROFEN
  11. VITAMINS NOS [Concomitant]
     Active Substance: VITAMINS
  12. CLARITINE [Concomitant]
     Active Substance: LORATADINE
  13. POTASSIUM [Concomitant]
     Active Substance: POTASSIUM

REACTIONS (2)
  - COVID-19 [Unknown]
  - Migraine [Unknown]
